FAERS Safety Report 6780081-0 (Version None)
Quarter: 2010Q2

REPORT INFORMATION
  Report Type: 
  Country: None (occurrence: None)
  Receive Date: 20100618
  Receipt Date: 20100607
  Transmission Date: 20101027
  Serious: Yes (Hospitalization)
  Sender: FDA-Public Use
  Company Number: DE-ELI_LILLY_AND_COMPANY-DE201006002707

PATIENT
  Age: 46 Year
  Sex: Female

DRUGS (10)
  1. ZYPREXA [Suspect]
     Indication: SCHIZOPHRENIA, PARANOID TYPE
     Dosage: 10 MG, DAILY (1/D)
     Route: 048
     Dates: start: 20091230, end: 20100106
  2. ZYPREXA [Suspect]
     Dosage: 15 MG, DAILY (1/D)
     Route: 048
     Dates: start: 20100107, end: 20100110
  3. ZYPREXA [Suspect]
     Dosage: 20 MG, DAILY (1/D)
     Route: 048
     Dates: start: 20100111, end: 20100118
  4. ZYPREXA [Suspect]
     Dosage: 15 MG, DAILY (1/D)
     Route: 048
     Dates: start: 20100119, end: 20100122
  5. ZYPREXA [Suspect]
     Dosage: 10 MG, DAILY (1/D)
     Route: 048
     Dates: start: 20100123, end: 20100126
  6. RISPERDAL [Concomitant]
     Dosage: 2 MG, UNK
     Route: 048
     Dates: start: 20100115, end: 20100120
  7. RISPERDAL [Concomitant]
     Dosage: 3 MG, UNK
     Route: 048
     Dates: start: 20100121, end: 20100201
  8. RISPERDAL [Concomitant]
     Dosage: 2 MG, UNK
     Route: 048
     Dates: start: 20100202, end: 20100204
  9. RISPERDAL [Concomitant]
     Dosage: 1 MG, UNK
     Route: 048
     Dates: start: 20100205, end: 20100206
  10. LORAZEPAM [Concomitant]
     Dosage: 2 MG, UNK
     Route: 048
     Dates: start: 20091230

REACTIONS (4)
  - BREAST PAIN [None]
  - HIRSUTISM [None]
  - HOSPITALISATION [None]
  - HYPERPROLACTINAEMIA [None]
